FAERS Safety Report 5755220-0 (Version None)
Quarter: 2008Q2

REPORT INFORMATION
  Report Type: 
  Country: None (occurrence: None)
  Receive Date: 20080602
  Receipt Date: 20080527
  Transmission Date: 20081010
  Serious: Yes (Hospitalization, Other)
  Sender: FDA-Public Use
  Company Number: US-BAYER-200714176BCC

PATIENT
  Age: 16 Year
  Sex: Female
  Weight: 57 kg

DRUGS (1)
  1. ASPIRIN [Suspect]
     Route: 048
     Dates: start: 20071214

REACTIONS (2)
  - DRUG LEVEL INCREASED [None]
  - OVERDOSE [None]
